FAERS Safety Report 25219634 (Version 1)
Quarter: 2025Q2

REPORT INFORMATION
  Report Type: Spontaneous
  Country: FR (occurrence: FR)
  Receive Date: 20250421
  Receipt Date: 20250421
  Transmission Date: 20250717
  Serious: Yes (Other)
  Sender: Vantive US Healthcare
  Company Number: None

PATIENT
  Age: 56 Year
  Sex: Male
  Weight: 87 kg

DRUGS (1)
  1. SODIUM CHLORIDE [Suspect]
     Active Substance: SODIUM CHLORIDE
     Indication: Fluid replacement
     Route: 041
     Dates: start: 20250221, end: 20250221

REACTIONS (2)
  - Pulmonary oedema [Recovered/Resolved]
  - Incorrect dose administered [Recovered/Resolved]

NARRATIVE: CASE EVENT DATE: 20250221
